FAERS Safety Report 6023015-9 (Version None)
Quarter: 2008Q4

REPORT INFORMATION
  Report Type: 
  Country: None (occurrence: None)
  Receive Date: 20081230
  Receipt Date: 20081222
  Transmission Date: 20090506
  Serious: Yes (Other)
  Sender: FDA-Public Use
  Company Number: JP-ASTRAZENECA-2008AP09895

PATIENT
  Age: 51 Year
  Sex: Male

DRUGS (2)
  1. CRESTOR [Suspect]
     Indication: HYPERCHOLESTEROLAEMIA
     Route: 048
     Dates: start: 20081107, end: 20081220
  2. BANSOUREICHA (HERB TEA) [Concomitant]
     Indication: DIABETES MELLITUS

REACTIONS (1)
  - WHITE BLOOD CELL COUNT INCREASED [None]
